FAERS Safety Report 5291035-8 (Version None)
Quarter: 2007Q2

REPORT INFORMATION
  Report Type: 
  Country: None (occurrence: None)
  Receive Date: 20070405
  Receipt Date: 20070405
  Transmission Date: 20071010
  Serious: No
  Sender: FDA-Public Use
  Company Number: None

PATIENT
  Age: 20 Year
  Sex: Female
  Weight: 70.3075 kg

DRUGS (1)
  1. TERBUTALINE SULFATE [Suspect]
     Indication: PREMATURE LABOUR
     Dosage: I TABLET EVERY 6 HOURS PO
     Route: 048
     Dates: start: 20070303, end: 20070304

REACTIONS (9)
  - CHEST PAIN [None]
  - DIZZINESS [None]
  - DYSPNOEA [None]
  - FEELING ABNORMAL [None]
  - FEELING JITTERY [None]
  - HEADACHE [None]
  - HEART RATE INCREASED [None]
  - HEART RATE IRREGULAR [None]
  - RESTLESSNESS [None]
